FAERS Safety Report 9350009 (Version 8)
Quarter: 2014Q4

REPORT INFORMATION
  Report Type: Spontaneous
  Country: JP (occurrence: JP)
  Receive Date: 20130614
  Receipt Date: 20141021
  Transmission Date: 20150529
  Serious: Yes (Life-Threatening, Hospitalization, Other)
  Sender: FDA-Public Use
  Company Number: JP-B.I. PHARMACEUTICALS,INC./RIDGEFIELD-2013-BI-16988NB

PATIENT
  Age: 90 Year
  Sex: Male
  Weight: 68 kg

DRUGS (14)
  1. PRAZAXA [Suspect]
     Active Substance: DABIGATRAN ETEXILATE MESYLATE
     Dosage: 150 MG
     Route: 048
     Dates: start: 20121203, end: 20130408
  2. TANATRIL [Concomitant]
     Active Substance: IMIDAPRIL
     Indication: HYPERTENSION
     Dosage: 2.5 MG
     Route: 048
     Dates: start: 20081208
  3. POLYFUL [Concomitant]
     Active Substance: CALCIUM POLYCARBOPHIL
     Dosage: 1500 MG
     Route: 048
     Dates: start: 20100916
  4. SPIRIVA [Concomitant]
     Active Substance: TIOTROPIUM BROMIDE MONOHYDRATE
     Indication: CHRONIC OBSTRUCTIVE PULMONARY DISEASE
     Dosage: 5 MCG
     Route: 055
     Dates: start: 20110428
  5. METHYCOBAL [Concomitant]
     Active Substance: METHYLCOBALAMIN
     Indication: NEUROPATHY PERIPHERAL
     Dosage: 1500 MCG
     Route: 065
     Dates: start: 20020322
  6. TERNELIN [Concomitant]
     Active Substance: TIZANIDINE
     Dosage: 3 MG
     Route: 065
     Dates: start: 20100916
  7. TAKEPRON [Concomitant]
     Active Substance: LANSOPRAZOLE
     Indication: GASTRIC ULCER
     Dosage: 15 MG
     Route: 048
     Dates: start: 20100819
  8. OPALMON [Concomitant]
     Active Substance: LIMAPROST
     Indication: ARTHRALGIA
     Dosage: 15 MCG
     Route: 065
     Dates: start: 20020322
  9. PRAZAXA [Suspect]
     Active Substance: DABIGATRAN ETEXILATE MESYLATE
     Indication: ATRIAL FIBRILLATION
     Dosage: 220 MG
     Route: 048
     Dates: start: 20121029, end: 20130408
  10. CONIEL [Concomitant]
     Active Substance: BENIDIPINE HYDROCHLORIDE
     Indication: HYPERTENSION
     Dosage: 4 MG
     Route: 048
     Dates: start: 20031024
  11. MICARDIS [Concomitant]
     Active Substance: TELMISARTAN
     Indication: HYPERTENSION
     Dosage: 40 MG
     Route: 048
     Dates: start: 20081208
  12. HYPEN [Concomitant]
     Active Substance: ETODOLAC
     Dosage: 400 MG
     Route: 065
  13. BAYASPIRIN [Concomitant]
     Active Substance: ASPIRIN
     Indication: ANGINA PECTORIS
     Dosage: 100 MG
     Route: 048
     Dates: start: 20000213, end: 20121029
  14. VASOLAN [Concomitant]
     Active Substance: VERAPAMIL HYDROCHLORIDE
     Indication: ARRHYTHMIA SUPRAVENTRICULAR
     Dosage: 40 MG
     Route: 048
     Dates: start: 20090202

REACTIONS (11)
  - Autoimmune disorder [Unknown]
  - Prothrombin level decreased [Recovered/Resolved]
  - Rash [Unknown]
  - Photosensitivity reaction [Recovered/Resolved]
  - Antinuclear antibody positive [Unknown]
  - Ecchymosis [Recovered/Resolved]
  - Factor V inhibition [Recovered/Resolved]
  - Coagulation factor V level decreased [Recovered/Resolved]
  - Activated partial thromboplastin time prolonged [Recovered/Resolved]
  - Pruritus [Unknown]
  - Oedema [Recovered/Resolved]

NARRATIVE: CASE EVENT DATE: 201304
